FAERS Safety Report 7938478-9 (Version None)
Quarter: 2011Q4

REPORT INFORMATION
  Report Type: 
  Country: None (occurrence: None)
  Receive Date: 20111123
  Receipt Date: 20111117
  Transmission Date: 20120403
  Serious: Yes (Death, Other)
  Sender: FDA-Public Use
  Company Number: US-BAXTER-2011BH034562

PATIENT

DRUGS (2)
  1. CYCLOPHOSPHAMIDE [Suspect]
     Indication: FOETAL EXPOSURE TIMING UNSPECIFIED
     Route: 064
  2. DOXORUBICIN HCL [Suspect]
     Indication: FOETAL EXPOSURE TIMING UNSPECIFIED
     Route: 064

REACTIONS (9)
  - PREMATURE BABY [None]
  - AUTOIMMUNE DISORDER [None]
  - ACUTE RESPIRATORY DISTRESS SYNDROME [None]
  - FOETAL GROWTH RESTRICTION [None]
  - THROMBOCYTOPENIA [None]
  - FOETAL EXPOSURE DURING PREGNANCY [None]
  - RASH [None]
  - PERIVENTRICULAR LEUKOMALACIA [None]
  - FOETAL DISTRESS SYNDROME [None]
